FAERS Safety Report 9397606 (Version 1)
Quarter: 2013Q3

REPORT INFORMATION
  Report Type: Report from Study
  Country: IN (occurrence: IN)
  Receive Date: 20130712
  Receipt Date: 20130712
  Transmission Date: 20140515
  Serious: Yes (Death, Hospitalization)
  Sender: FDA-Public Use
  Company Number: IN-SANOFI-AVENTIS-2013SA068459

PATIENT
  Age: 68 Year
  Sex: Male

DRUGS (3)
  1. TAXOTERE [Suspect]
     Indication: OESOPHAGEAL CARCINOMA
     Route: 042
     Dates: start: 20130501
  2. TAXOTERE [Suspect]
     Indication: OESOPHAGEAL CARCINOMA
     Route: 042
     Dates: start: 20130521
  3. TAXOTERE [Suspect]
     Indication: OESOPHAGEAL CARCINOMA
     Route: 042

REACTIONS (2)
  - Hyperglycaemia [Fatal]
  - Hypotension [Fatal]
